FAERS Safety Report 8366963-7 (Version None)
Quarter: 2012Q2

REPORT INFORMATION
  Report Type: 
  Country: None (occurrence: None)
  Receive Date: 20120517
  Receipt Date: 20120513
  Transmission Date: 20120825
  Serious: Yes (Other)
  Sender: FDA-Public Use
  Company Number: PHHY2012MX029763

PATIENT
  Age: 55 Year
  Sex: Female

DRUGS (6)
  1. DOLO-NEUROBION FORTE [Concomitant]
     Indication: MYALGIA
     Dosage: UNK UKN, UNK
     Dates: start: 20120112
  2. ZOLEDRONOC ACID [Suspect]
     Indication: OSTEOPOROSIS
     Dosage: 5 MG/100 ML/YEAR
     Route: 042
     Dates: start: 20110415
  3. SOPHIXIN [Concomitant]
     Dosage: UNK UKN, UNK
     Dates: start: 20120209
  4. FLUMETOL [Concomitant]
     Dosage: 1 DROPS EVERY 24 HOURS
     Dates: start: 20120126
  5. HYDROCORTISONE [Concomitant]
     Dosage: 20 MG, (HALF TABLET EVERY 12 HOURS)
     Route: 048
     Dates: start: 20120112
  6. DICLOFENAC SODIUM [Concomitant]
     Dosage: 1 DROP (1MG) IN EACH EYE 2 TIMES A DAY
     Dates: start: 20120209

REACTIONS (9)
  - BLINDNESS [None]
  - VISUAL ACUITY REDUCED [None]
  - EYE PAIN [None]
  - DELIRIUM [None]
  - PYREXIA [None]
  - VISION BLURRED [None]
  - OPTIC NEUROPATHY [None]
  - PHOTOPHOBIA [None]
  - BACK PAIN [None]
